FAERS Safety Report 5639575-3 (Version None)
Quarter: 2008Q1

REPORT INFORMATION
  Report Type: 
  Country: None (occurrence: None)
  Receive Date: 20080226
  Receipt Date: 20080215
  Transmission Date: 20080703
  Serious: Yes (Hospitalization)
  Sender: FDA-Public Use
  Company Number: IE-GENENTECH-256481

PATIENT
  Age: 50 Year
  Sex: Female

DRUGS (2)
  1. MABTHERA [Suspect]
     Indication: HAEMOLYTIC ANAEMIA
     Dosage: UNK, UNK
     Route: 042
     Dates: start: 20080215, end: 20080215
  2. FOLIC ACID [Concomitant]
     Indication: DRUG USE FOR UNKNOWN INDICATION

REACTIONS (1)
  - SENSORIMOTOR DISORDER [None]
